FAERS Safety Report 12447809 (Version 2)
Quarter: 2016Q2

REPORT INFORMATION
  Report Type: Spontaneous
  Country: US (occurrence: US)
  Receive Date: 20160608
  Receipt Date: 20160614
  Transmission Date: 20160815
  Serious: Yes (Other)
  Sender: FDA-Public Use
  Company Number: US-MDT-ADR-2016-01028

PATIENT
  Age: 60 Year
  Sex: Male

DRUGS (6)
  1. LYRICA [Suspect]
     Active Substance: PREGABALIN
     Route: 065
  2. OXYCODONE [Suspect]
     Active Substance: OXYCODONE
     Route: 065
  3. ROBAXIN [Suspect]
     Active Substance: METHOCARBAMOL
     Route: 065
  4. KLONOPIN [Suspect]
     Active Substance: CLONAZEPAM
     Route: 065
  5. BACLOFEN. [Suspect]
     Active Substance: BACLOFEN
     Dosage: 334.8 MCG/DAY
     Route: 037
     Dates: start: 20160413
  6. BACLOFEN. [Suspect]
     Active Substance: BACLOFEN
     Route: 048

REACTIONS (4)
  - Muscle spasms [Unknown]
  - Decubitus ulcer [Unknown]
  - Pyrexia [Unknown]
  - Performance status decreased [Unknown]

NARRATIVE: CASE EVENT DATE: 2016
